FAERS Safety Report 5034221-4 (Version None)
Quarter: 2006Q2

REPORT INFORMATION
  Report Type: 
  Country: None (occurrence: None)
  Receive Date: 20060626
  Receipt Date: 20060620
  Transmission Date: 20061013
  Serious: Yes (Hospitalization)
  Sender: FDA-Public Use
  Company Number: AU-GLAXOSMITHKLINE-B0428618A

PATIENT
  Sex: Female

DRUGS (1)
  1. LITHIUM CARBONATE [Suspect]
     Dosage: 450MG VARIABLE DOSE
     Route: 048

REACTIONS (11)
  - BALANCE DISORDER [None]
  - COORDINATION ABNORMAL [None]
  - DIARRHOEA [None]
  - LETHARGY [None]
  - MUSCULAR WEAKNESS [None]
  - OVERDOSE [None]
  - PERIPHERAL COLDNESS [None]
  - POLLAKIURIA [None]
  - PRURITUS [None]
  - VISION BLURRED [None]
  - WEIGHT DECREASED [None]
